FAERS Safety Report 6007700-0 (Version None)
Quarter: 2008Q4

REPORT INFORMATION
  Report Type: 
  Country: None (occurrence: None)
  Receive Date: 20081217
  Receipt Date: 20080616
  Transmission Date: 20090506
  Serious: No
  Sender: FDA-Public Use
  Company Number: US-ASTRAZENECA-2008UW10153

PATIENT
  Age: 911 Month
  Sex: Male
  Weight: 92.1 kg

DRUGS (9)
  1. CRESTOR [Suspect]
     Indication: BLOOD CHOLESTEROL INCREASED
     Route: 048
     Dates: start: 20080512, end: 20080516
  2. CRESTOR [Suspect]
     Route: 048
  3. TOPROL-XL [Concomitant]
     Route: 048
  4. PROTONIX [Concomitant]
  5. ASPIRIN [Concomitant]
  6. DIOVAN [Concomitant]
  7. PLAVIX [Concomitant]
  8. DARVOCET-N 100 [Concomitant]
  9. NITROGLYCERIN [Concomitant]

REACTIONS (5)
  - ASTHENIA [None]
  - DIZZINESS [None]
  - FATIGUE [None]
  - HALLUCINATION [None]
  - HYPOTENSION [None]
